FAERS Safety Report 14555599 (Version 1)
Quarter: 2018Q1

REPORT INFORMATION
  Report Type: Spontaneous
  Country: CA (occurrence: CA)
  Receive Date: 20180220
  Receipt Date: 20180220
  Transmission Date: 20180509
  Serious: Yes (Life-Threatening)
  Sender: FDA-Public Use
  Company Number: CA-ABBVIE-18S-028-2261155-00

PATIENT
  Age: 61 Year
  Sex: Female
  Weight: 63 kg

DRUGS (4)
  1. MILK THISTLE [Concomitant]
     Active Substance: DIETARY SUPPLEMENT\HERBALS\MILK THISTLE
     Indication: PRODUCT USED FOR UNKNOWN INDICATION
     Route: 065
  2. BIOTIN [Concomitant]
     Active Substance: BIOTIN
     Indication: PRODUCT USED FOR UNKNOWN INDICATION
     Route: 065
  3. CALCIUM MAGNESIUM ZINK [Concomitant]
     Indication: PRODUCT USED FOR UNKNOWN INDICATION
     Route: 065
  4. NICOTINIC ACID [Suspect]
     Active Substance: NIACIN
     Indication: BLOOD CHOLESTEROL INCREASED
     Dosage: 500 MG, ONCE
     Route: 048

REACTIONS (11)
  - Bruxism [Unknown]
  - Headache [Unknown]
  - Neck pain [Unknown]
  - Asthenia [Unknown]
  - Feeling abnormal [Unknown]
  - Dizziness [Unknown]
  - Respiratory arrest [Unknown]
  - Syncope [Unknown]
  - Fall [Unknown]
  - Vomiting [Unknown]
  - Asphyxia [Unknown]
